FAERS Safety Report 10225959 (Version 1)
Quarter: 2014Q2

REPORT INFORMATION
  Report Type: Spontaneous
  Country: US (occurrence: US)
  Receive Date: 20140609
  Receipt Date: 20140609
  Transmission Date: 20141212
  Serious: No
  Sender: FDA-Public Use
  Company Number: US-ASTELLAS-2014US002527

PATIENT
  Age: 90 Year
  Sex: Male

DRUGS (2)
  1. XTANDI [Suspect]
     Indication: PROSTATE CANCER METASTATIC
     Dosage: 4 PILLS QD
     Route: 048
     Dates: start: 201311
  2. XTANDI [Suspect]
     Dosage: 2 PILLS BID TO MAINTAIN SAME TOTAL DAILY DOSE
     Route: 048

REACTIONS (3)
  - Intentional product misuse [Unknown]
  - Drug prescribing error [Unknown]
  - Product size issue [Unknown]
